FAERS Safety Report 25367280 (Version 3)
Quarter: 2025Q2

REPORT INFORMATION
  Report Type: Spontaneous
  Country: IT (occurrence: IT)
  Receive Date: 20250528
  Receipt Date: 20250613
  Transmission Date: 20250717
  Serious: Yes (Other)
  Sender: RANBAXY
  Company Number: IT-MINISAL02-1027068

PATIENT
  Age: 17 Year
  Sex: Female
  Weight: 49 kg

DRUGS (2)
  1. IMATINIB [Suspect]
     Active Substance: IMATINIB
     Indication: Chronic myeloid leukaemia
     Dosage: 400 MILLIGRAM, DAILY, 400 MG/DAY (260 MG/M2)
     Route: 048
     Dates: start: 20240113, end: 20240114
  2. IMATINIB [Suspect]
     Active Substance: IMATINIB
     Dosage: 500 MILLIGRAM, DAILY, 500 MG/DAY (340 MG/M2)
     Route: 048
     Dates: start: 20240115, end: 20241121

REACTIONS (1)
  - Drug-induced liver injury [Recovering/Resolving]

NARRATIVE: CASE EVENT DATE: 20241121
